FAERS Safety Report 6374336-1 (Version None)
Quarter: 2009Q3

REPORT INFORMATION
  Report Type: 
  Country: None (occurrence: None)
  Receive Date: 20090921
  Receipt Date: 20090910
  Transmission Date: 20100115
  Serious: Yes (Hospitalization)
  Sender: FDA-Public Use
  Company Number: 232910K09USA

PATIENT
  Age: 52 Year
  Sex: Male
  Weight: 92 kg

DRUGS (14)
  1. REBIF [Suspect]
     Indication: MULTIPLE SCLEROSIS
     Dosage: 44 MCG, 3 IN 1 WEEKS, SUBCUTANEOUS
     Route: 058
     Dates: start: 20080402, end: 20090201
  2. DIOVAN [Concomitant]
  3. ARICEPT [Concomitant]
  4. NEXIUM (ESOMEPRAZOLE MANGESIUM) [Concomitant]
  5. POTASSIUM SUPPLEMENT (POTASSIUM /00031401/) [Concomitant]
  6. FLUID PILL (DIRURETICS) [Concomitant]
  7. BLOOD PRESSURE PILL (ALL OTHER THERAPEUTIC PRODUCTS) [Concomitant]
  8. LABETALOL HCL [Concomitant]
  9. INHALER (ALL OTHER THERAPEUTIC PRODUCTS) [Concomitant]
  10. PROVIGIL [Concomitant]
  11. VYTORIN [Concomitant]
  12. MULTIVITAMIN (MULTIVITAMIN /00831701/) [Concomitant]
  13. FISH OIL (FISH OIL) [Concomitant]
  14. KEPPRA [Concomitant]

REACTIONS (3)
  - CONVULSION [None]
  - DEPRESSION [None]
  - SUICIDAL IDEATION [None]
